FAERS Safety Report 26204324 (Version 1)
Quarter: 2025Q4

REPORT INFORMATION
  Report Type: Spontaneous
  Country: GB (occurrence: GB)
  Receive Date: 20251226
  Receipt Date: 20251226
  Transmission Date: 20260119
  Serious: Yes (Other)
  Sender: SANDOZ
  Company Number: GB-002147023-NVSC2025GB196125

PATIENT
  Age: 8 Decade
  Sex: Female

DRUGS (5)
  1. MAXITROL [Suspect]
     Active Substance: DEXAMETHASONE\NEOMYCIN SULFATE\POLYMYXIN B SULFATE
     Indication: Keratitis
     Dosage: UNK, TID
  2. VISUXL [Concomitant]
     Indication: Keratitis
     Dosage: UNK
  3. VISUXL [Concomitant]
     Indication: Dry eye
  4. Hylo night [Concomitant]
     Indication: Dry eye
     Dosage: UNK UNK, QN (BEFORE BEDTIME)
  5. Hylo night [Concomitant]
     Indication: Keratitis

REACTIONS (5)
  - Ulcerative keratitis [Recovering/Resolving]
  - Corneal perforation [Recovering/Resolving]
  - Flat anterior chamber of eye [Recovering/Resolving]
  - Toxicity to various agents [Recovering/Resolving]
  - Product prescribing error [Unknown]
